FAERS Safety Report 7986596-1 (Version None)
Quarter: 2011Q4

REPORT INFORMATION
  Report Type: 
  Country: None (occurrence: None)
  Receive Date: 20111216
  Receipt Date: 20110907
  Transmission Date: 20120403
  Serious: Yes (Hospitalization, Other)
  Sender: FDA-Public Use
  Company Number: US-BRISTOL-MYERS SQUIBB COMPANY-15944804

PATIENT
  Age: 31 Year
  Sex: Male
  Weight: 80 kg

DRUGS (3)
  1. ABILIFY [Suspect]
     Dosage: INITIALLY AT 10 MG/D IN DEC-2007, AND 20MG/D IN FEB-2007.
     Route: 048
     Dates: start: 20080301, end: 20080818
  2. RISPERDAL [Concomitant]
     Indication: PSYCHOTIC DISORDER
     Dosage: QAM. ALSO 4MG
     Route: 048
     Dates: start: 20070611
  3. VISTARIL [Concomitant]
     Dates: start: 20070611

REACTIONS (1)
  - PRIAPISM [None]
